FAERS Safety Report 4968129-7 (Version None)
Quarter: 2006Q2

REPORT INFORMATION
  Report Type: 
  Country: None (occurrence: None)
  Receive Date: 20060405
  Receipt Date: 20060324
  Transmission Date: 20061013
  Serious: Yes (Other)
  Sender: FDA-Public Use
  Company Number: FRWYE507927MAR06

PATIENT

DRUGS (2)
  1. EFFEXOR XR [Suspect]
     Indication: GENERALISED ANXIETY DISORDER
     Dosage: 75 MG TOTAL DAILY TRANSPLACENTAL
     Route: 064
     Dates: start: 20051222
  2. EFFEXOR XR [Suspect]
     Indication: PHOBIA
     Dosage: 75 MG TOTAL DAILY TRANSPLACENTAL
     Route: 064
     Dates: start: 20051222

REACTIONS (5)
  - ABORTION INDUCED [None]
  - DRUG EXPOSURE DURING PREGNANCY [None]
  - FOETAL CYSTIC HYGROMA [None]
  - FOETAL MALFORMATION [None]
  - TRISOMY 21 [None]
